FAERS Safety Report 9139055 (Version 1)
Quarter: 2013Q1

REPORT INFORMATION
  Report Type: Spontaneous
  Country: US (occurrence: US)
  Receive Date: 20130305
  Receipt Date: 20130305
  Transmission Date: 20140127
  Serious: Yes (Hospitalization)
  Sender: FDA-Public Use
  Company Number: US-BAYER-2013-025771

PATIENT
  Age: 23 Year
  Sex: Female
  Weight: 94.33 kg

DRUGS (22)
  1. YAZ [Suspect]
     Indication: CONTRACEPTION
     Dosage: UNK
     Route: 048
     Dates: start: 20081104
  2. YASMIN [Suspect]
     Dosage: UNK
     Route: 048
     Dates: start: 20081104
  3. GARDASIL [Concomitant]
     Dosage: UNK
     Route: 030
     Dates: start: 20081104, end: 20090106
  4. AZITHROMYCIN [Concomitant]
     Dosage: 500 MG, UNK
     Route: 048
     Dates: start: 20081110
  5. DIFLUCAN [Concomitant]
     Dosage: 150 MG, ONCE
     Dates: start: 20081110, end: 20090505
  6. DILAUDID [Concomitant]
  7. INSULIN [Concomitant]
     Indication: DIABETES MELLITUS
  8. LASIX [Concomitant]
  9. NEXIUM [Concomitant]
  10. LOVENOX [Concomitant]
  11. LOPRESSOR [Concomitant]
  12. POTASSIUM CHLORIDE [Concomitant]
  13. SODIUM PHOSPHATE [Concomitant]
  14. MAGNESIUM SULFATE [Concomitant]
  15. LANTUS [Concomitant]
  16. NOVOLOG [Concomitant]
  17. ZOSYN [Concomitant]
  18. AMBIEN [Concomitant]
  19. CALCIUM GLUCONATE [Concomitant]
  20. LOPID [Concomitant]
  21. PERCOCET [Concomitant]
  22. FLUCONAZOLE [Concomitant]
     Dosage: 150 MG, TAKE ONE TODAY
     Route: 048
     Dates: start: 20081110, end: 20090205

REACTIONS (1)
  - Cholelithiasis [None]
